FAERS Safety Report 10679053 (Version 1)
Quarter: 2014Q4

REPORT INFORMATION
  Report Type: Spontaneous
  Country: US (occurrence: US)
  Receive Date: 20141229
  Receipt Date: 20141229
  Transmission Date: 20150529
  Serious: No
  Sender: FDA-Public Use
  Company Number: US-PFIZER INC-2014358115

PATIENT
  Age: 31 Year
  Sex: Female

DRUGS (1)
  1. METAXALONE. [Suspect]
     Active Substance: METAXALONE
     Indication: MUSCULOSKELETAL DISORDER
     Dosage: UNK

REACTIONS (3)
  - Abdominal pain [Unknown]
  - Drug hypersensitivity [Unknown]
  - Nausea [Unknown]
